FAERS Safety Report 22668803 (Version 4)
Quarter: 2024Q3

REPORT INFORMATION
  Report Type: Report from Study
  Country: ZA (occurrence: ZA)
  Receive Date: 20230704
  Receipt Date: 20240918
  Transmission Date: 20241017
  Serious: Yes (Life-Threatening, Other)
  Sender: TAKEDA
  Company Number: ZA-TAKEDA-2023TUS059851

PATIENT
  Sex: Male

DRUGS (4)
  1. VEDOLIZUMAB [Suspect]
     Active Substance: VEDOLIZUMAB
     Indication: Colitis ulcerative
     Dosage: 300 MILLIGRAM
     Route: 042
     Dates: start: 20230609, end: 20240916
  2. PENTASA [Concomitant]
     Active Substance: MESALAMINE
     Dosage: 500 MILLIGRAM, QID
     Dates: start: 2015
  3. ALLOPURINOL [Concomitant]
     Active Substance: ALLOPURINOL
     Dosage: UNK
  4. CORTISONE [Concomitant]
     Active Substance: CORTISONE
     Dosage: UNK

REACTIONS (12)
  - Brain neoplasm [Not Recovered/Not Resolved]
  - Haematochezia [Unknown]
  - Diarrhoea [Unknown]
  - Insomnia [Unknown]
  - Throat irritation [Unknown]
  - Limb discomfort [Unknown]
  - Pain [Unknown]
  - Rhinorrhoea [Unknown]
  - Dyspepsia [Unknown]
  - Flatulence [Unknown]
  - Nausea [Unknown]
  - Cough [Unknown]
